FAERS Safety Report 26180809 (Version 1)
Quarter: 2025Q4

REPORT INFORMATION
  Report Type: Spontaneous
  Country: US (occurrence: US)
  Receive Date: 20251221
  Receipt Date: 20251221
  Transmission Date: 20260117
  Serious: Yes (Life-Threatening, Other)
  Sender: AMGEN
  Company Number: US-AMGEN-USASP2025244803

PATIENT

DRUGS (4)
  1. PREDNISONE [Suspect]
     Active Substance: PREDNISONE
     Indication: Prostate cancer metastatic
     Dosage: UNK
     Route: 065
  2. LEUPROLIDE [Concomitant]
     Active Substance: LEUPROLIDE
     Indication: Prostate cancer metastatic
  3. ABIRATERONE ACETATE [Concomitant]
     Active Substance: ABIRATERONE ACETATE
     Indication: Prostate cancer metastatic
  4. APALUTAMIDE [Concomitant]
     Active Substance: APALUTAMIDE
     Indication: Prostate cancer metastatic

REACTIONS (2)
  - Toxicity to various agents [Unknown]
  - Prostate cancer metastatic [Unknown]
